FAERS Safety Report 7604381-7 (Version None)
Quarter: 2011Q3

REPORT INFORMATION
  Report Type: 
  Country: None (occurrence: None)
  Receive Date: 20110712
  Receipt Date: 20110707
  Transmission Date: 20111222
  Serious: Yes (Other)
  Sender: FDA-Public Use
  Company Number: US-PFIZER INC-2011059129

PATIENT
  Sex: Female

DRUGS (5)
  1. CHANTIX [Suspect]
     Indication: SMOKING CESSATION THERAPY
     Dosage: STARTER PACK, 1MG CONTINUING MONTH PACK
     Dates: start: 20070705, end: 20071001
  2. CHANTIX [Suspect]
     Dosage: STARTER PACK, 1MG CONTINUING MONTH PACK
     Dates: start: 20080429, end: 20080501
  3. CEPACOL [Concomitant]
     Indication: OROPHARYNGEAL PAIN
     Dosage: UNK
     Dates: end: 20110101
  4. MOTRIN [Concomitant]
     Indication: PAIN
     Dosage: UNK
     Dates: start: 20060101
  5. CLARITIN [Concomitant]
     Indication: HYPERSENSITIVITY
     Dosage: UNK
     Dates: end: 20110101

REACTIONS (16)
  - ANXIETY [None]
  - AGORAPHOBIA [None]
  - COMMUNICATION DISORDER [None]
  - AGGRESSION [None]
  - COGNITIVE DISORDER [None]
  - MOOD SWINGS [None]
  - ABNORMAL BEHAVIOUR [None]
  - IRRITABILITY [None]
  - NIGHTMARE [None]
  - MUSCLE TWITCHING [None]
  - ANGER [None]
  - SUICIDAL IDEATION [None]
  - DEPRESSION [None]
  - SOCIAL AVOIDANT BEHAVIOUR [None]
  - AMNESIA [None]
  - HOMICIDAL IDEATION [None]
